FAERS Safety Report 5426167-4 (Version None)
Quarter: 2007Q3

REPORT INFORMATION
  Report Type: 
  Country: None (occurrence: None)
  Receive Date: 20070827
  Receipt Date: 20070823
  Transmission Date: 20080115
  Serious: Yes (Congenital Anomaly)
  Sender: FDA-Public Use
  Company Number: A0656957A

PATIENT
  Sex: Female
  Weight: 2.3 kg

DRUGS (3)
  1. COMBIVIR [Suspect]
     Indication: HIV INFECTION
     Dates: start: 20061219
  2. VIRACEPT [Concomitant]
     Indication: HIV INFECTION
     Dosage: 2500MG PER DAY
     Dates: start: 20061219
  3. TRIMETHOPRIM [Concomitant]

REACTIONS (2)
  - DRUG EXPOSURE DURING PREGNANCY [None]
  - VENTRICULAR SEPTAL DEFECT [None]
